FAERS Safety Report 15684801 (Version 2)
Quarter: 2019Q1

REPORT INFORMATION
  Report Type: Spontaneous
  Country: US (occurrence: US)
  Receive Date: 20181204
  Receipt Date: 20190111
  Transmission Date: 20190417
  Serious: No
  Sender: FDA-Public Use
  Company Number: US-GLAXOSMITHKLINE-US2018217409

PATIENT
  Age: 42 Year
  Sex: Female

DRUGS (1)
  1. ABREVA [Suspect]
     Active Substance: DOCOSANOL
     Indication: ORAL HERPES
     Dosage: UNK
     Dates: start: 20181117, end: 20181122

REACTIONS (4)
  - Oral herpes [Unknown]
  - Adverse drug reaction [Unknown]
  - Condition aggravated [Unknown]
  - Product use issue [Unknown]
